FAERS Safety Report 21864695 (Version 3)
Quarter: 2023Q2

REPORT INFORMATION
  Report Type: Spontaneous
  Country: US (occurrence: US)
  Receive Date: 20230116
  Receipt Date: 20230629
  Transmission Date: 20230721
  Serious: No
  Sender: FDA-Public Use
  Company Number: US-drreddys-SPO/USA/22/0159241

PATIENT
  Sex: Male

DRUGS (2)
  1. OMEPRAZOLE [Suspect]
     Active Substance: OMEPRAZOLE
     Indication: Product used for unknown indication
  2. OMEPRAZOLE [Suspect]
     Active Substance: OMEPRAZOLE

REACTIONS (3)
  - Gastrooesophageal reflux disease [Unknown]
  - Drug ineffective [Unknown]
  - Product quality issue [Unknown]
